FAERS Safety Report 8328924-3 (Version None)
Quarter: 2012Q2

REPORT INFORMATION
  Report Type: 
  Country: None (occurrence: None)
  Receive Date: 20120502
  Receipt Date: 20120426
  Transmission Date: 20120825
  Serious: Yes (Other)
  Sender: FDA-Public Use
  Company Number: US-PURDUE-USA-2008-0034391

PATIENT
  Sex: Female

DRUGS (1)
  1. OXYCONTIN [Suspect]
     Indication: PAIN
     Dosage: 640 MG, DAILY
     Route: 048
     Dates: start: 20030318

REACTIONS (8)
  - ANXIETY [None]
  - NECK PAIN [None]
  - INSOMNIA [None]
  - PAIN IN EXTREMITY [None]
  - BACK PAIN [None]
  - CRYING [None]
  - OPIATES POSITIVE [None]
  - HYPERHIDROSIS [None]
